FAERS Safety Report 24273877 (Version 1)
Quarter: 2024Q3

REPORT INFORMATION
  Report Type: Spontaneous
  Country: US (occurrence: US)
  Receive Date: 20240902
  Receipt Date: 20240902
  Transmission Date: 20241016
  Serious: No
  Sender: ASTELLAS
  Company Number: US-ASTELLAS-2024US011054

PATIENT
  Age: 77 Year
  Sex: Male
  Weight: 107.9 kg

DRUGS (5)
  1. XTANDI [Suspect]
     Active Substance: ENZALUTAMIDE
     Indication: Product used for unknown indication
     Dosage: 120 MG, ONCE DAILY
     Route: 048
  2. TIKOSYN [Concomitant]
     Active Substance: DOFETILIDE
     Indication: Atrial fibrillation
     Dosage: 500 ?G, TWICE DAILY
     Route: 048
     Dates: start: 20231205
  3. TIKOSYN [Concomitant]
     Active Substance: DOFETILIDE
     Indication: Atrial tachycardia
  4. ELIQUIS [Concomitant]
     Active Substance: APIXABAN
     Indication: Atrial fibrillation
     Dosage: 5 MG, TWICE DAILY
     Route: 048
     Dates: start: 20240130
  5. ADVIL [Concomitant]
     Active Substance: IBUPROFEN\IBUPROFEN SODIUM
     Indication: Product used for unknown indication
     Dosage: 1 DF, AS NEEDED
     Route: 048

REACTIONS (1)
  - Underdose [Unknown]
